FAERS Safety Report 7425174-X (Version None)
Quarter: 2011Q2

REPORT INFORMATION
  Report Type: 
  Country: None (occurrence: None)
  Receive Date: 20110420
  Receipt Date: 20110408
  Transmission Date: 20111010
  Serious: Yes (Other)
  Sender: FDA-Public Use
  Company Number: AU-JNJFOC-20110100984

PATIENT
  Sex: Male

DRUGS (7)
  1. STELARA [Suspect]
     Route: 058
  2. STELARA [Suspect]
     Route: 058
  3. STELARA [Suspect]
     Route: 058
  4. STELARA [Suspect]
     Route: 058
  5. VITAMIN B [Concomitant]
  6. STELARA [Suspect]
     Route: 058
  7. STELARA [Suspect]
     Indication: PSORIASIS
     Route: 058

REACTIONS (4)
  - DRUG INEFFECTIVE [None]
  - ABDOMINAL DISCOMFORT [None]
  - COELIAC DISEASE [None]
  - PSORIASIS [None]
